FAERS Safety Report 8192314 (Version 6)
Quarter: 2013Q1

REPORT INFORMATION
  Report Type: Report from Study
  Country: US (occurrence: US)
  Receive Date: 20111020
  Receipt Date: 20130214
  Transmission Date: 20140127
  Serious: Yes (Hospitalization, Other)
  Sender: FDA-Public Use
  Company Number: US-NOVOPROD-337310

PATIENT
  Age: 36 Year
  Sex: Female
  Weight: 92.97 kg

DRUGS (5)
  1. LIRAGLUTIDE FLEXPEN [Suspect]
     Indication: OBESITY
     Dosage: 0.6 MG, QD
     Route: 058
     Dates: start: 20111006, end: 20111014
  2. TOPAMAX [Concomitant]
     Indication: MIGRAINE
     Dosage: 25 MG, QD
     Dates: start: 20111009
  3. BC [Concomitant]
     Indication: BACK PAIN
     Dosage: 1 PACKAGE, QD
     Dates: start: 2010
  4. IBUPROFEN [Concomitant]
     Indication: BACK PAIN
     Dosage: 3.0 TAB, QD
     Dates: start: 20100820
  5. CYCLOBENZAPRINE [Concomitant]
     Indication: BACK PAIN
     Dosage: 1 TAB, QD
     Dates: start: 20110918, end: 20111008

REACTIONS (2)
  - Migraine [Recovered/Resolved]
  - Nausea [Recovered/Resolved]
